FAERS Safety Report 15491952 (Version 3)
Quarter: 2019Q2

REPORT INFORMATION
  Report Type: Spontaneous
  Country: CL (occurrence: CL)
  Receive Date: 20181012
  Receipt Date: 20190502
  Transmission Date: 20190711
  Serious: Yes (Death, Hospitalization)
  Sender: FDA-Public Use
  Company Number: CL-SUN PHARMACEUTICAL INDUSTRIES LTD-2018R1-187499

PATIENT
  Sex: Female

DRUGS (3)
  1. BUPROPION. [Suspect]
     Active Substance: BUPROPION
     Indication: PRODUCT USED FOR UNKNOWN INDICATION
     Dosage: 9.5 GRAM
     Route: 048
     Dates: start: 201702
  2. CHLORPROMAZINE. [Concomitant]
     Active Substance: CHLORPROMAZINE
     Indication: PRODUCT USED FOR UNKNOWN INDICATION
     Dosage: 1.5 GRAM
     Route: 065
     Dates: start: 201702
  3. ALCOHOL. [Concomitant]
     Active Substance: ALCOHOL
     Indication: PRODUCT USED FOR UNKNOWN INDICATION
     Dosage: UNK
     Route: 065
     Dates: start: 201702

REACTIONS (14)
  - Myoclonus [Unknown]
  - Death [Fatal]
  - Depressed level of consciousness [Unknown]
  - Electrocardiogram QT prolonged [Unknown]
  - Blood lactic acid increased [Unknown]
  - Seizure [Recovered/Resolved]
  - Coma [Unknown]
  - Cerebral atrophy [Unknown]
  - Tachycardia [Unknown]
  - Cardiac arrest [Recovered/Resolved]
  - Gaze palsy [Recovered/Resolved]
  - Hypotension [Unknown]
  - Overdose [Unknown]
  - Hypoxia [Unknown]

NARRATIVE: CASE EVENT DATE: 2017
